FAERS Safety Report 25686269 (Version 3)
Quarter: 2025Q4

REPORT INFORMATION
  Report Type: Spontaneous
  Country: BR (occurrence: BR)
  Receive Date: 20250815
  Receipt Date: 20251205
  Transmission Date: 20260118
  Serious: Yes (Hospitalization)
  Sender: BIOMARIN
  Company Number: BR-BIOMARINAP-BR-2025-165510

PATIENT
  Age: 16 Year
  Sex: Male

DRUGS (1)
  1. NAGLAZYME [Suspect]
     Active Substance: GALSULFASE
     Indication: Mucopolysaccharidosis VI

REACTIONS (1)
  - Tracheostomy [Not Recovered/Not Resolved]

NARRATIVE: CASE EVENT DATE: 20250201
